FAERS Safety Report 10456276 (Version 1)
Quarter: 2014Q3

REPORT INFORMATION
  Report Type: Spontaneous
  Country: IT (occurrence: None)
  Receive Date: 20140828
  Receipt Date: 20140828
  Transmission Date: 20150326
  Serious: Yes (Hospitalization)
  Sender: FDA-Public Use
  Company Number: 13IT007948

PATIENT
  Age: 30 Year
  Sex: Female

DRUGS (5)
  1. ANAFRANIL [Suspect]
     Active Substance: CLOMIPRAMINE HYDROCHLORIDE
     Indication: INTENTIONAL OVERDOSE
     Dosage: 15 DF, TOTAL (25 MG FILM-COATED TABLETS), ORAL
     Route: 048
     Dates: start: 20130919, end: 20130919
  2. PAROXETINE [Suspect]
     Active Substance: PAROXETINE\PAROXETINE HYDROCHLORIDE
     Indication: INTENTIONAL OVERDOSE
     Dosage: 8 DF, TOTAL (20MG FILM-COATED TABLETS)
     Route: 048
     Dates: start: 20130919, end: 20130919
  3. FELISON [Suspect]
     Active Substance: FLURAZEPAM MONOHYDROCHLORIDE
     Indication: INTENTIONAL OVERDOSE
     Dosage: 10 DF, TOTAL (15 MG CAPSULES), ORAL
     Dates: start: 20130919, end: 20130919
  4. RIVOTRIL [Suspect]
     Active Substance: CLONAZEPAM
     Indication: INTENTIONAL OVERDOSE
     Dosage: 15 DF, TOTAL (2 MG TABLETS), ORAL
     Route: 048
     Dates: start: 20130919, end: 20130919
  5. MUTABON [Suspect]
     Active Substance: AMITRIPTYLINE HYDROCHLORIDE\PERPHENAZINE
     Indication: INTENTIONAL OVERDOSE
     Dosage: 20 DF, TOTAL (25 MG + 2 FILM COATED TABLETS), ORAL
     Route: 048
     Dates: start: 20130919, end: 20130919

REACTIONS (3)
  - Intentional overdose [None]
  - Tachycardia [None]
  - Coma [None]

NARRATIVE: CASE EVENT DATE: 20130919
